FAERS Safety Report 14328545 (Version 1)
Quarter: 2017Q4

REPORT INFORMATION
  Report Type: Spontaneous
  Country: IT (occurrence: IT)
  Receive Date: 20171227
  Receipt Date: 20171227
  Transmission Date: 20180321
  Serious: Yes (Hospitalization)
  Sender: FDA-Public Use
  Company Number: IT-JNJFOC-20171231656

PATIENT
  Age: 85 Year
  Sex: Female

DRUGS (6)
  1. IPERTEN [Concomitant]
     Active Substance: MANIDIPINE
     Route: 065
  2. SIVASTIN [Concomitant]
     Active Substance: SIMVASTATIN
     Route: 065
  3. COVERSYL [Concomitant]
     Active Substance: PERINDOPRIL
     Route: 065
  4. LASIX [Concomitant]
     Active Substance: FUROSEMIDE
     Route: 065
  5. ESOMEPRAZOLE [Concomitant]
     Active Substance: ESOMEPRAZOLE
     Route: 065
  6. XARELTO [Suspect]
     Active Substance: RIVAROXABAN
     Indication: FEMUR FRACTURE
     Route: 048

REACTIONS (1)
  - Anaemia [Not Recovered/Not Resolved]

NARRATIVE: CASE EVENT DATE: 20171207
